FAERS Safety Report 23669207 (Version 1)
Quarter: 2024Q1

REPORT INFORMATION
  Report Type: Spontaneous
  Country: US (occurrence: None)
  Receive Date: 20240322
  Receipt Date: 20240322
  Transmission Date: 20240410
  Serious: No
  Sender: FDA-Public Use
  Company Number: None

PATIENT
  Age: 17 Month
  Sex: Female
  Weight: 13.61 kg

DRUGS (1)
  1. NIRSEVIMAB [Suspect]
     Active Substance: NIRSEVIMAB
     Dosage: 0.5 ML ONCE INTRAMUSCULAR?
     Route: 030

REACTIONS (1)
  - Product use issue [None]

NARRATIVE: CASE EVENT DATE: 20231228
